FAERS Safety Report 7982239-1 (Version None)
Quarter: 2011Q4

REPORT INFORMATION
  Report Type: 
  Country: None (occurrence: None)
  Receive Date: 20111215
  Receipt Date: 20111215
  Transmission Date: 20120403
  Serious: Yes (Life-Threatening, Hospitalization)
  Sender: FDA-Public Use
  Company Number: None

PATIENT
  Sex: Female
  Weight: 74 kg

DRUGS (6)
  1. CYMBALTA [Concomitant]
     Route: 048
  2. BETA BLOCKER, [Concomitant]
  3. SYNTHROID [Concomitant]
     Route: 048
  4. HYDROCORTISONE CREAM [Concomitant]
     Route: 061
  5. PRADAXA [Suspect]
     Indication: ATRIAL FIBRILLATION
     Dosage: 150 MG
     Route: 048
     Dates: start: 20111001, end: 20111212
  6. MYCOPHENOLATE MOFETIL (CELLCEPT) [Concomitant]

REACTIONS (3)
  - VASCULITIS [None]
  - CEREBRAL HAEMORRHAGE [None]
  - HEMIPARESIS [None]
